FAERS Safety Report 10661996 (Version 1)
Quarter: 2014Q4

REPORT INFORMATION
  Report Type: Spontaneous
  Country: US (occurrence: None)
  Receive Date: 20141217
  Receipt Date: 20141217
  Transmission Date: 20150529
  Serious: No
  Sender: FDA-Public Use
  Company Number: None

PATIENT
  Age: 82 Year
  Sex: Female

DRUGS (12)
  1. BRIMONIDINE OPTHALMIC [Concomitant]
  2. CLOTRIMAZOLE TROCHES [Concomitant]
  3. ALBUTEROL. [Concomitant]
     Active Substance: ALBUTEROL
  4. AZTREONAM. [Concomitant]
     Active Substance: AZTREONAM
  5. HEPARIN [Concomitant]
     Active Substance: HEPARIN SODIUM
  6. TIOTROPIUM [Concomitant]
     Active Substance: TIOTROPIUM
  7. CALCIUM CARBONATE/VITAMIN D [Concomitant]
     Active Substance: CALCIUM CARBONATE\VITAMIN D
  8. INSULIN ASPART [Suspect]
     Active Substance: INSULIN ASPART
     Indication: HYPERGLYCAEMIA
     Dosage: 18 UNITS, PRN
     Route: 058
     Dates: start: 20140528, end: 20141014
  9. VANCOMYCIN [Concomitant]
     Active Substance: VANCOMYCIN
  10. SIMVASTATIN. [Concomitant]
     Active Substance: SIMVASTATIN
  11. TIMOLOL OPTHALMIC [Concomitant]
  12. LANSOPRAZOLE. [Concomitant]
     Active Substance: LANSOPRAZOLE

REACTIONS (1)
  - Blood glucose decreased [None]

NARRATIVE: CASE EVENT DATE: 20141009
